FAERS Safety Report 8762481 (Version 2)
Quarter: 2012Q4

REPORT INFORMATION
  Report Type: 
  Country: NL (occurrence: NL)
  Receive Date: 20120829
  Receipt Date: 20121003
  Transmission Date: 20130627
  Serious: Yes (Hospitalization)
  Sender: FDA-Public Use
  Company Number: NL-PFIZER INC-2012207347

PATIENT
  Age: 23 Year
  Sex: Male
  Weight: 88.3 kg

DRUGS (8)
  1. GENOTROPIN [Suspect]
     Indication: HYPOPITUITARISM
     Dosage: 0.5 mg, 7/wk
     Route: 058
     Dates: start: 20090310
  2. DESMOPRESSIN [Concomitant]
     Indication: BLOOD ANTIDIURETIC HORMONE DECREASED
     Dosage: UNK
     Dates: start: 20040612
  3. CORTISON ACETAAT [Concomitant]
     Indication: BLOOD CORTICOTROPHIN DECREASED
     Dosage: UNK
     Dates: start: 20050824
  4. PREGNYL [Concomitant]
     Indication: BLOOD LUTEINISING HORMONE DECREASED
     Dosage: UNK
     Dates: start: 20071016
  5. PREGNYL [Concomitant]
     Indication: BLOOD FOLLICLE STIMULATING HORMONE DECREASED
  6. PREGNYL [Concomitant]
     Indication: HYPOGONADISM MALE
  7. THYRAX [Concomitant]
     Indication: BLOOD THYROID STIMULATING HORMONE DECREASED
     Dosage: UNK
     Dates: start: 20050427
  8. THYRAX [Concomitant]
     Indication: PRIMARY HYPOTHYROIDISM

REACTIONS (2)
  - Adrenocortical insufficiency acute [Recovered/Resolved]
  - Gastroenteritis viral [Recovered/Resolved]
